FAERS Safety Report 16793433 (Version 1)
Quarter: 2019Q3

REPORT INFORMATION
  Report Type: Report from Study
  Country: None (occurrence: US)
  Receive Date: 20190911
  Receipt Date: 20190911
  Transmission Date: 20191005
  Serious: Yes (Death)
  Sender: FDA-Public Use
  Company Number: US-ABBVIE-19K-163-2919084-00

PATIENT
  Age: 60 Year
  Sex: Female

DRUGS (3)
  1. VENCLEXTA [Suspect]
     Active Substance: VENETOCLAX
     Indication: ACUTE MYELOID LEUKAEMIA
     Dosage: DAY 1 - 1 TABLET
     Route: 048
     Dates: start: 20190819, end: 20190819
  2. VENCLEXTA [Suspect]
     Active Substance: VENETOCLAX
     Dosage: DAY 2- 2 TABLET
     Route: 048
     Dates: start: 20190820, end: 20190820
  3. VENCLEXTA [Suspect]
     Active Substance: VENETOCLAX
     Dosage: FROM DAY 3
     Route: 048
     Dates: start: 20190821, end: 20190906

REACTIONS (1)
  - Death [Fatal]

NARRATIVE: CASE EVENT DATE: 20190906
